FAERS Safety Report 9441601 (Version 5)
Quarter: 2015Q3

REPORT INFORMATION
  Report Type: Report from Study
  Country: TW (occurrence: TW)
  Receive Date: 20130806
  Receipt Date: 20150921
  Transmission Date: 20151125
  Serious: Yes (Death)
  Sender: FDA-Public Use
  Company Number: TW-AMGEN-TWNCT2013054663

PATIENT
  Age: 70 Year
  Sex: Female
  Weight: 60 kg

DRUGS (10)
  1. METHOTREXATE [Concomitant]
     Active Substance: METHOTREXATE
     Indication: RHEUMATOID ARTHRITIS
     Dosage: 15 MG, WEEKLY ( LAST DOSE WAS RECEIVED ON 22JUL2013)
     Route: 048
     Dates: start: 20121219, end: 20130722
  2. FOLIC ACID. [Concomitant]
     Active Substance: FOLIC ACID
     Indication: RHEUMATOID ARTHRITIS
     Dosage: 5 MG, 1X/DAY
     Route: 048
     Dates: start: 20121219
  3. VALSARTAN. [Concomitant]
     Active Substance: VALSARTAN
     Indication: HYPERTENSION
     Dosage: 80 MG, 1X/DAY
     Route: 048
     Dates: start: 20130702
  4. VILON [Concomitant]
     Indication: SUPPLEMENTATION THERAPY
     Dosage: 1 DF, 2X/DAY
     Route: 048
     Dates: start: 20130702
  5. CHLORZOXAZONE. [Concomitant]
     Active Substance: CHLORZOXAZONE
     Indication: DIZZINESS
     Dosage: 200 MG, 1X/DAY
     Route: 048
     Dates: start: 20130702
  6. SUWELL [Concomitant]
     Indication: GASTRIC DISORDER
     Dosage: 1 DF, 2X/DAY
     Route: 048
     Dates: start: 20121219
  7. CINNARIZINE [Concomitant]
     Active Substance: CINNARIZINE
     Indication: DIZZINESS
     Dosage: 25 MG, 2X/DAY
     Dates: start: 20130409
  8. ETORICOXIB [Concomitant]
     Active Substance: ETORICOXIB
     Indication: RHEUMATOID ARTHRITIS
     Dosage: 60 MG, 1X/DAY
     Route: 048
     Dates: start: 20120719
  9. ETANERCEPT [Suspect]
     Active Substance: ETANERCEPT
     Indication: RHEUMATOID ARTHRITIS
     Dosage: 50 MG, WEEKLY LAST DOSE RECEIVED 22JUL2013
     Route: 058
     Dates: start: 20130506, end: 20130722
  10. PREDNISOLONE. [Concomitant]
     Active Substance: PREDNISOLONE
     Indication: RHEUMATOID ARTHRITIS
     Dosage: 5 MG, 1X/DAY
     Route: 048
     Dates: start: 20130408

REACTIONS (1)
  - Sudden death [Fatal]

NARRATIVE: CASE EVENT DATE: 20130724
